FAERS Safety Report 25744190 (Version 1)
Quarter: 2025Q3

REPORT INFORMATION
  Report Type: Spontaneous
  Country: CN (occurrence: CN)
  Receive Date: 20250901
  Receipt Date: 20250901
  Transmission Date: 20251021
  Serious: Yes (Hospitalization, Other)
  Sender: BAXTER
  Company Number: None

PATIENT
  Age: 52 Year
  Sex: Female
  Weight: 57 kg

DRUGS (4)
  1. CYCLOPHOSPHAMIDE [Suspect]
     Active Substance: CYCLOPHOSPHAMIDE
     Indication: Breast cancer female
     Dosage: 0.8 G, QD
     Route: 041
     Dates: start: 20250809, end: 20250809
  2. SODIUM CHLORIDE [Suspect]
     Active Substance: SODIUM CHLORIDE
     Dosage: 250 ML, QD, WITH CYCLOPHOSPHAMIDE
     Route: 041
     Dates: start: 20250809, end: 20250809
  3. SODIUM CHLORIDE [Suspect]
     Active Substance: SODIUM CHLORIDE
     Dosage: 250 ML, QD, WITH DOCETAXEL
     Route: 041
     Dates: start: 20250811, end: 20250811
  4. DOCETAXEL [Suspect]
     Active Substance: DOCETAXEL
     Indication: Breast cancer female
     Dosage: 110 MG, QD, IVGTT
     Route: 041
     Dates: start: 20250711, end: 20250711

REACTIONS (5)
  - Myelosuppression [Unknown]
  - Febrile neutropenia [Recovering/Resolving]
  - Chills [Unknown]
  - Pyrexia [Recovered/Resolved]
  - Asthenia [Unknown]

NARRATIVE: CASE EVENT DATE: 20250819
